FAERS Safety Report 6142069-2 (Version None)
Quarter: 2009Q2

REPORT INFORMATION
  Report Type: 
  Country: None (occurrence: None)
  Receive Date: 20090402
  Receipt Date: 20090227
  Transmission Date: 20091009
  Serious: Yes (Other)
  Sender: FDA-Public Use
  Company Number: US-AMGEN-US340229

PATIENT
  Sex: Male

DRUGS (2)
  1. NPLATE [Suspect]
     Indication: IDIOPATHIC THROMBOCYTOPENIC PURPURA
     Dates: start: 20080905, end: 20080925
  2. CORTICOSTEROIDS [Concomitant]
     Dates: start: 20000901

REACTIONS (1)
  - THERAPEUTIC RESPONSE DECREASED [None]
